FAERS Safety Report 22109348 (Version 3)
Quarter: 2025Q3

REPORT INFORMATION
  Report Type: Report from Study
  Country: CA (occurrence: CA)
  Receive Date: 20230317
  Receipt Date: 20250828
  Transmission Date: 20251021
  Serious: Yes (Hospitalization)
  Sender: CSL BEHRING
  Company Number: CA-BEH-2023156358

PATIENT
  Age: 60 Year
  Sex: Female
  Weight: 96.145 kg

DRUGS (14)
  1. HIZENTRA [Suspect]
     Active Substance: HUMAN IMMUNOGLOBULIN G
     Indication: Secondary immunodeficiency
     Dosage: 8 GRAM, QW
     Route: 065
     Dates: start: 20220207
  2. HIZENTRA [Suspect]
     Active Substance: HUMAN IMMUNOGLOBULIN G
     Dosage: 8 G, QW
     Route: 058
     Dates: start: 20220207
  3. EDOXABAN TOSYLATE [Concomitant]
     Active Substance: EDOXABAN TOSYLATE
  4. PAROXETINE [Concomitant]
     Active Substance: PAROXETINE
  5. CALCIUM\CHOLECALCIFEROL [Concomitant]
     Active Substance: CALCIUM\CHOLECALCIFEROL
  6. BISOPROLOL [Concomitant]
     Active Substance: BISOPROLOL
  7. PANTOPRAZOLE [Concomitant]
     Active Substance: PANTOPRAZOLE
  8. CEFALEX [CEFALEXIN] [Concomitant]
  9. CLONIDINE [Concomitant]
     Active Substance: CLONIDINE
  10. PRAVASTATIN [Concomitant]
     Active Substance: PRAVASTATIN
  11. VIT D [VITAMIN D NOS] [Concomitant]
  12. PREGABALIN [Concomitant]
     Active Substance: PREGABALIN
  13. MORPHINE [Concomitant]
     Active Substance: MORPHINE
  14. CEFADROXIL [Concomitant]
     Active Substance: CEFADROXIL

REACTIONS (9)
  - Cellulite [Unknown]
  - Lymphatic disorder [Unknown]
  - Injection site swelling [Recovered/Resolved]
  - Skin fragility [Unknown]
  - Dermatitis contact [Unknown]
  - Dermatitis contact [Unknown]
  - Product use complaint [Unknown]
  - Injection site pain [Unknown]
  - Infusion site swelling [Unknown]

NARRATIVE: CASE EVENT DATE: 20230306
